FAERS Safety Report 5654415-4 (Version None)
Quarter: 2008Q1

REPORT INFORMATION
  Report Type: 
  Country: None (occurrence: None)
  Receive Date: 20080305
  Receipt Date: 20080219
  Transmission Date: 20080703
  Serious: No
  Sender: FDA-Public Use
  Company Number: US021136

PATIENT
  Age: 16 Year
  Sex: Female
  Weight: 52.1637 kg

DRUGS (4)
  1. PROVIGIL [Suspect]
     Indication: NARCOLEPSY
     Dosage: 200 MG QD ORAL
     Route: 048
     Dates: start: 20070820
  2. LOESTRIN 1.5/30 [Concomitant]
  3. MIDRIN [Concomitant]
  4. PROMETHAZINE [Concomitant]

REACTIONS (3)
  - DRY MOUTH [None]
  - NAUSEA [None]
  - PRURITUS GENERALISED [None]
